FAERS Safety Report 8080828-X (Version None)
Quarter: 2012Q1

REPORT INFORMATION
  Report Type: 
  Country: None (occurrence: None)
  Receive Date: 20120130
  Receipt Date: 20120116
  Transmission Date: 20120608
  Serious: Yes (Life-Threatening, Hospitalization)
  Sender: FDA-Public Use
  Company Number: GB-ROCHE-1013247

PATIENT
  Age: 32 Year
  Sex: Female

DRUGS (1)
  1. NAPROXEN SODIUM [Suspect]
     Indication: HEADACHE
     Route: 048
     Dates: start: 20110608, end: 20110612

REACTIONS (5)
  - BRAIN OEDEMA [None]
  - SYNCOPE [None]
  - HYPONATRAEMIA [None]
  - AGITATION [None]
  - ABNORMAL BEHAVIOUR [None]
